FAERS Safety Report 12311875 (Version 1)
Quarter: 2016Q2

REPORT INFORMATION
  Report Type: Not Available
  Country: None (occurrence: US)
  Receive Date: 20160427
  Receipt Date: 20160427
  Transmission Date: 20160815
  Serious: No
  Sender: FDA-Public Use
  Company Number: US-AKORN-23206

PATIENT
  Age: 31 Year
  Sex: Female

DRUGS (1)
  1. COSOPT [Suspect]
     Active Substance: DORZOLAMIDE HYDROCHLORIDE\TIMOLOL MALEATE

REACTIONS (4)
  - Eye swelling [None]
  - Ocular hyperaemia [None]
  - Eyelid skin dryness [None]
  - Eye pruritus [None]
